FAERS Safety Report 19403644 (Version 1)
Quarter: 2021Q2

REPORT INFORMATION
  Report Type: Report from Study
  Country: IN (occurrence: IN)
  Receive Date: 20210611
  Receipt Date: 20210611
  Transmission Date: 20210717
  Serious: Yes (Death)
  Sender: FDA-Public Use
  Company Number: PHHY2016IN023577

PATIENT
  Age: 56 Year
  Sex: Male
  Weight: 80 kg

DRUGS (3)
  1. TASIGNA [Suspect]
     Active Substance: NILOTINIB
     Indication: CHRONIC MYELOID LEUKAEMIA
     Dosage: 400 MG, BID
     Route: 048
     Dates: start: 20130211, end: 20160616
  2. TASIGNA [Suspect]
     Active Substance: NILOTINIB
     Dosage: 300 MG, BID
     Route: 048
     Dates: start: 20160708, end: 20210525
  3. TASIGNA [Suspect]
     Active Substance: NILOTINIB
     Dosage: 300 MG,BID
     Route: 048
     Dates: start: 20160620

REACTIONS (2)
  - Cytogenetic analysis abnormal [Recovering/Resolving]
  - COVID-19 [Fatal]
